FAERS Safety Report 11587980 (Version 2)
Quarter: 2015Q4

REPORT INFORMATION
  Report Type: Spontaneous
  Country: US (occurrence: US)
  Receive Date: 20151002
  Receipt Date: 20151019
  Transmission Date: 20160304
  Serious: No
  Sender: FDA-Public Use
  Company Number: US-ASTRAZENECA-2015SE93901

PATIENT
  Age: 79 Year
  Sex: Female

DRUGS (14)
  1. NEXIUM 24HR [Suspect]
     Active Substance: ESOMEPRAZOLE MAGNESIUM
     Indication: DYSPEPSIA
     Dosage: 22.3 MG, 1X/DAY
     Route: 048
     Dates: start: 2015
  2. MAGNESIUM [Interacting]
     Active Substance: MAGNESIUM
     Indication: SUPPLEMENTATION THERAPY
     Dosage: NON AZ PRODUCT
     Route: 065
     Dates: start: 2015, end: 201509
  3. MAGNESIUM [Interacting]
     Active Substance: MAGNESIUM
     Indication: SUPPLEMENTATION THERAPY
     Dosage: NON AZ PRODUCT
     Route: 065
  4. VITAMIN D [Concomitant]
     Active Substance: CHOLECALCIFEROL
     Dosage: 2000 MG, 1X/DAY
  5. MAGNESIUM [Interacting]
     Active Substance: MAGNESIUM
     Indication: SOMNOLENCE
     Dosage: NON AZ PRODUCT
     Route: 065
     Dates: start: 2015, end: 201509
  6. MAGNESIUM [Interacting]
     Active Substance: MAGNESIUM
     Indication: SOMNOLENCE
     Dosage: NON AZ PRODUCT
     Route: 065
  7. NORVASC [Concomitant]
     Active Substance: AMLODIPINE BESYLATE
     Indication: HYPERTENSION
  8. CALCIUM CARBONATE. [Concomitant]
     Active Substance: CALCIUM CARBONATE
     Dosage: 2000 MG, 1X/DAY (2 TAB 1 TAB A DAY)
  9. NEXIUM 24HR [Interacting]
     Active Substance: ESOMEPRAZOLE MAGNESIUM
     Indication: DYSPEPSIA
     Route: 048
  10. POTASSIUM [Interacting]
     Active Substance: POTASSIUM
     Indication: SUPPLEMENTATION THERAPY
     Dosage: 20 MG UNKNOWN NON AZ PRODUCT
     Route: 065
     Dates: start: 20150313
  11. DIPHENHYDRAMINE. [Concomitant]
     Active Substance: DIPHENHYDRAMINE
     Dosage: 50 MG, 1X/DAY
  12. HYDROCHLOROTHIAZIDE. [Concomitant]
     Active Substance: HYDROCHLOROTHIAZIDE
     Indication: HYPERTENSION
  13. POTASSIUM [Interacting]
     Active Substance: POTASSIUM
     Indication: SUPPLEMENTATION THERAPY
     Dosage: 99 MG UNKNOWN NON AZ PRODUCT
     Route: 065
  14. FISH OIL [Concomitant]
     Active Substance: FISH OIL
     Dosage: 1000 MG DAILY
     Route: 065

REACTIONS (3)
  - Drug ineffective [Not Recovered/Not Resolved]
  - Rash [Not Recovered/Not Resolved]
  - Drug interaction [Unknown]

NARRATIVE: CASE EVENT DATE: 20150313
